FAERS Safety Report 20136992 (Version 1)
Quarter: 2021Q4

REPORT INFORMATION
  Report Type: Report from Study
  Country: KR (occurrence: None)
  Receive Date: 20211201
  Receipt Date: 20211201
  Transmission Date: 20220303
  Serious: Yes (Death, Hospitalization)
  Sender: FDA-Public Use
  Company Number: KR-Eisai Medical Research-EC-2021-104126

PATIENT
  Age: 71 Year
  Sex: Male
  Weight: 64 kg

DRUGS (15)
  1. LENVIMA [Suspect]
     Active Substance: LENVATINIB
     Indication: Hepatocellular carcinoma
     Route: 048
     Dates: start: 20200720, end: 20200825
  2. LENVIMA [Suspect]
     Active Substance: LENVATINIB
     Route: 048
     Dates: start: 20200826, end: 20210914
  3. CHOLINE ALFOSCERATE [Concomitant]
     Active Substance: CHOLINE ALFOSCERATE
     Indication: Prophylaxis
     Route: 048
     Dates: end: 202109
  4. HEPA MERZ [Concomitant]
     Indication: Chronic hepatitis C
     Route: 048
     Dates: start: 20200417, end: 20210921
  5. ALDACTONE [Concomitant]
     Active Substance: SPIRONOLACTONE
     Indication: Oedema peripheral
     Route: 048
     Dates: start: 20200626, end: 20211006
  6. AMLODIPINE BESYLATE\OLMESARTAN MEDOXOMIL [Concomitant]
     Active Substance: AMLODIPINE BESYLATE\OLMESARTAN MEDOXOMIL
     Indication: Hypertension
     Dosage: 5/40MG
     Route: 048
     Dates: start: 20201005
  7. HEPA-MERZ [Concomitant]
     Indication: Chronic hepatitis C
     Route: 048
     Dates: start: 20200417, end: 20210921
  8. ALDACTONE [Concomitant]
     Active Substance: SPIRONOLACTONE
     Indication: Oedema
     Route: 048
     Dates: start: 20200626, end: 20211006
  9. METHYLPREDNISOLONE ACEPONATE [Concomitant]
     Active Substance: METHYLPREDNISOLONE ACEPONATE
     Indication: Skin exfoliation
     Dates: start: 20201005
  10. ESROBAN [Concomitant]
     Indication: Skin exfoliation
     Dates: start: 20201019
  11. DIFUCO [Concomitant]
     Indication: Skin exfoliation
     Dates: start: 20201123
  12. FOTAGEL [Concomitant]
     Indication: Irritable bowel syndrome
     Route: 048
     Dates: start: 20210118, end: 20210928
  13. TRAMADOL HYDROCHLORIDE [Concomitant]
     Active Substance: TRAMADOL HYDROCHLORIDE
     Indication: Pain
     Route: 048
     Dates: start: 20201221, end: 20211006
  14. PHAZYME [Concomitant]
     Active Substance: DIMETHICONE 410
     Indication: Prophylaxis
     Route: 048
     Dates: start: 20210226, end: 20211006
  15. K-CAB [Concomitant]
     Indication: Prophylaxis
     Dates: start: 20210226, end: 20211006

REACTIONS (2)
  - Palmar-plantar erythrodysaesthesia syndrome [Fatal]
  - Staphylococcal bacteraemia [Fatal]

NARRATIVE: CASE EVENT DATE: 20210914
